FAERS Safety Report 7035587-6 (Version None)
Quarter: 2010Q4

REPORT INFORMATION
  Report Type: 
  Country: None (occurrence: None)
  Receive Date: 20101008
  Receipt Date: 20100930
  Transmission Date: 20110411
  Serious: Yes (Other)
  Sender: FDA-Public Use
  Company Number: BR-PFIZER INC-2010124621

PATIENT
  Sex: Female
  Weight: 63 kg

DRUGS (4)
  1. CHAMPIX [Suspect]
     Indication: TOBACCO USER
     Dosage: UNK
     Route: 048
  2. LOSARTAN [Concomitant]
     Indication: BLOOD PRESSURE INCREASED
     Dosage: 50 MG, 3X/DAY
  3. AMLODIPINE [Concomitant]
     Indication: BLOOD PRESSURE INCREASED
     Dosage: UNK
     Dates: start: 20100401
  4. CODEINE PHOSPHATE/PARACETAMOL [Concomitant]
     Indication: CHEST PAIN
     Dosage: 30 MG, UNK

REACTIONS (2)
  - ANXIETY [None]
  - NERVOUSNESS [None]
